FAERS Safety Report 11968670 (Version 3)
Quarter: 2016Q1

REPORT INFORMATION
  Report Type: Spontaneous
  Country: FI (occurrence: FI)
  Receive Date: 20160128
  Receipt Date: 20160309
  Transmission Date: 20160526
  Serious: Yes (Hospitalization, Other)
  Sender: FDA-Public Use
  Company Number: FI-ROCHE-1698165

PATIENT
  Age: 79 Year
  Sex: Male

DRUGS (7)
  1. ORADEXON [Concomitant]
     Active Substance: DEXAMETHASONE
     Dosage: PREMEDICATION
     Route: 042
     Dates: start: 20150715
  2. RITUXIMAB [Suspect]
     Active Substance: RITUXIMAB
     Indication: CHRONIC LYMPHOCYTIC LEUKAEMIA
     Route: 042
     Dates: start: 20150306, end: 20150307
  3. HISTEC [Concomitant]
     Dosage: PREMEDICATION
     Route: 048
     Dates: start: 20150715
  4. OBINUTUZUMAB [Suspect]
     Active Substance: OBINUTUZUMAB
     Indication: CHRONIC LYMPHOCYTIC LEUKAEMIA
     Dosage: RECEIVED ALL 6 TREATMENT CYCLES
     Route: 042
     Dates: start: 20150715, end: 20151212
  5. CHLORAMBUCIL [Concomitant]
     Active Substance: CHLORAMBUCIL
     Indication: CHRONIC LYMPHOCYTIC LEUKAEMIA
     Dosage: RECEIVED ALL 6 TREATMENT CYCLES
     Route: 048
     Dates: start: 20150715, end: 20151212
  6. PANADOL (FINLAND) [Concomitant]
     Dosage: PREMEDICATION
     Route: 048
     Dates: start: 20150715
  7. BENDAMUSTINE [Concomitant]
     Active Substance: BENDAMUSTINE
     Indication: CHRONIC LYMPHOCYTIC LEUKAEMIA
     Route: 042
     Dates: start: 20150306, end: 20150307

REACTIONS (5)
  - Bacterial sepsis [Recovered/Resolved]
  - Adverse drug reaction [Recovered/Resolved]
  - Neutropenia [Recovered/Resolved]
  - Infection [Recovered/Resolved]
  - Diverticulitis [Recovered/Resolved]

NARRATIVE: CASE EVENT DATE: 20150411
